FAERS Safety Report 10783051 (Version 1)
Quarter: 2015Q1

REPORT INFORMATION
  Report Type: Spontaneous
  Country: FR (occurrence: FR)
  Receive Date: 20150210
  Receipt Date: 20150210
  Transmission Date: 20150721
  Serious: Yes (Life-Threatening, Other)
  Sender: FDA-Public Use
  Company Number: FR-PFIZER INC-2015051229

PATIENT
  Age: 64 Year
  Sex: Female

DRUGS (4)
  1. NEURONTIN [Suspect]
     Active Substance: GABAPENTIN
     Indication: NEUROPATHY PERIPHERAL
     Dosage: 300 MG, DAILY
     Route: 048
     Dates: start: 20141024, end: 20141209
  2. NEURONTIN [Suspect]
     Active Substance: GABAPENTIN
     Dosage: OVER 300 MG DAILY
     Route: 048
     Dates: start: 20141210, end: 201412
  3. NEBIVOLOL HYDROCHLORIDE [Concomitant]
     Active Substance: NEBIVOLOL HYDROCHLORIDE
  4. ACUPAN [Concomitant]
     Active Substance: NEFOPAM HYDROCHLORIDE

REACTIONS (4)
  - Memory impairment [Recovering/Resolving]
  - Coordination abnormal [Recovered/Resolved]
  - Suicidal behaviour [Recovered/Resolved]
  - Suicidal ideation [Recovered/Resolved]

NARRATIVE: CASE EVENT DATE: 201412
